FAERS Safety Report 4661029-1 (Version None)
Quarter: 2005Q2

REPORT INFORMATION
  Report Type: 
  Country: None (occurrence: None)
  Receive Date: 20050511
  Receipt Date: 20050502
  Transmission Date: 20051028
  Serious: Yes (Death)
  Sender: FDA-Public Use
  Company Number: 2005BI006226

PATIENT
  Age: 59 Year
  Sex: Female
  Weight: 125 kg

DRUGS (13)
  1. NATALIZUMAB [Suspect]
     Indication: RHEUMATOID ARTHRITIS
     Dosage: 300 MG;QW;IV
     Route: 042
     Dates: start: 20041012, end: 20050216
  2. METHOTREXATE [Concomitant]
  3. FOLIC ACID [Concomitant]
  4. PREDNISONE TAB [Concomitant]
  5. PROPRANOLOL [Concomitant]
  6. HYDROCODONE BITARTRATE [Concomitant]
  7. TAGAMET [Concomitant]
  8. RELAFEN [Concomitant]
  9. MIACALCIN [Concomitant]
  10. CLARITIN [Concomitant]
  11. ZANTAC [Concomitant]
  12. GLUCOSAMINE [Concomitant]
  13. CHONDROITIN [Concomitant]

REACTIONS (9)
  - BACK PAIN [None]
  - CONDITION AGGRAVATED [None]
  - CRYPTOGENIC ORGANIZING PNEUMONIA [None]
  - GASTROENTERITIS VIRAL [None]
  - PNEUMONIA [None]
  - RHEUMATOID ARTHRITIS [None]
  - SEPSIS [None]
  - SPLEEN DISORDER [None]
  - STOMACH DISCOMFORT [None]
